FAERS Safety Report 8802079 (Version 1)
Quarter: 2012Q4

REPORT INFORMATION
  Report Type: 
  Country: DE (occurrence: GB)
  Receive Date: 20120921
  Receipt Date: 20120921
  Transmission Date: 20130627
  Serious: Yes (Disabling)
  Sender: FDA-Public Use
  Company Number: GB-BRISTOL-MYERS SQUIBB COMPANY-16967259

PATIENT
  Age: 23 Year
  Sex: Female

DRUGS (3)
  1. METFORMIN HCL [Suspect]
     Route: 048
     Dates: start: 20120825
  2. CITALOPRAM [Suspect]
     Indication: DEPRESSION
     Route: 048
     Dates: start: 20110706
  3. VITAMIN D3 [Suspect]
     Dosage: 1428.5714IU
     Route: 048
     Dates: start: 20120828

REACTIONS (1)
  - Sinus headache [Unknown]
